FAERS Safety Report 10214589 (Version 2)
Quarter: 2014Q2

REPORT INFORMATION
  Report Type: Spontaneous
  Country: JP (occurrence: JP)
  Receive Date: 20140603
  Receipt Date: 20140611
  Transmission Date: 20141212
  Serious: Yes (Other)
  Sender: FDA-Public Use
  Company Number: JP-GLAXOSMITHKLINE-B0992799A

PATIENT
  Age: 7 Year
  Sex: Male

DRUGS (3)
  1. RELENZA [Suspect]
     Indication: INFLUENZA
     Dosage: 10MG TWICE PER DAY
     Route: 055
     Dates: start: 20140123, end: 20140123
  2. HUSTAZOL [Concomitant]
     Indication: COUGH
     Route: 048
     Dates: start: 20140123, end: 20140201
  3. CALONAL [Concomitant]
     Indication: PYREXIA
     Route: 048

REACTIONS (1)
  - Convulsion [Recovered/Resolved]
